FAERS Safety Report 7604583-X (Version None)
Quarter: 2011Q3

REPORT INFORMATION
  Report Type: 
  Country: None (occurrence: None)
  Receive Date: 20110712
  Receipt Date: 20110707
  Transmission Date: 20111222
  Serious: Yes (Hospitalization)
  Sender: FDA-Public Use
  Company Number: AT-PFIZER INC-2011143417

PATIENT
  Age: 27 Month
  Sex: Male
  Weight: 14 kg

DRUGS (1)
  1. CARDURA [Suspect]
     Dosage: 2 MG, SINGLE; TOOK HALF OF A 4 MG TABLET
     Route: 048

REACTIONS (4)
  - ACCIDENTAL DRUG INTAKE BY CHILD [None]
  - HYPOTENSION [None]
  - FATIGUE [None]
  - SINUS TACHYCARDIA [None]
